FAERS Safety Report 20394495 (Version 5)
Quarter: 2025Q1

REPORT INFORMATION
  Report Type: Report from Study
  Country: EG (occurrence: EG)
  Receive Date: 20220129
  Receipt Date: 20250327
  Transmission Date: 20250409
  Serious: Yes (Other)
  Sender: NOVARTIS
  Company Number: EG-NOVARTISPH-NVSC2022EG016142

PATIENT
  Sex: Female

DRUGS (10)
  1. AFINITOR [Suspect]
     Active Substance: EVEROLIMUS
     Indication: Breast cancer metastatic
     Route: 048
     Dates: start: 2013
  2. AFINITOR [Suspect]
     Active Substance: EVEROLIMUS
     Route: 048
  3. KISQALI [Suspect]
     Active Substance: RIBOCICLIB
     Indication: Breast cancer metastatic
     Dosage: 200 MG, Q8H (FOR 21 DAYS AND A FREE WEEK)
     Route: 048
     Dates: start: 20190701
  4. KISQALI [Suspect]
     Active Substance: RIBOCICLIB
     Dosage: 3 DOSAGE FORM, QD (EVERY 8 HOURS)
     Route: 048
  5. KISQALI [Suspect]
     Active Substance: RIBOCICLIB
     Dosage: 1 DOSAGE FORM, TID FOR 21 DAYS AND 1 WEEK OFF
     Route: 048
     Dates: start: 201912, end: 202404
  6. KISQALI [Suspect]
     Active Substance: RIBOCICLIB
     Dosage: 200 MG, BID (ONE TABLET TWICE DAILY FOR 21 DAYS AND 1 WEEK OFF)
     Route: 048
  7. FASLODEX [Suspect]
     Active Substance: FULVESTRANT
     Indication: Hormone therapy
     Route: 065
  8. BISOPROLOL FUMARATE [Concomitant]
     Active Substance: BISOPROLOL FUMARATE
     Indication: Hypertension
     Dosage: 1 DOSAGE FORM, QD (SINCE 30 YEARS AGO)
     Route: 048
  9. DILTIAZEM HYDROCHLORIDE [Concomitant]
     Active Substance: DILTIAZEM HYDROCHLORIDE
     Indication: Hypertension
     Dosage: 60 MG, TID (SINCE 30 YEARS AGO)
     Route: 065
  10. Asprotect [Concomitant]
     Indication: Hypertension
     Dosage: UNK, QD (SINCE 30 YEARS AGO)
     Route: 065

REACTIONS (11)
  - Gastrointestinal haemorrhage [Recovered/Resolved]
  - Anaemia [Recovering/Resolving]
  - Renal impairment [Not Recovered/Not Resolved]
  - Concomitant disease aggravated [Not Recovered/Not Resolved]
  - Metastases to liver [Unknown]
  - Osteoporosis [Not Recovered/Not Resolved]
  - Alopecia [Not Recovered/Not Resolved]
  - Coronavirus infection [Recovering/Resolving]
  - Dyspepsia [Not Recovered/Not Resolved]
  - Pyrexia [Recovering/Resolving]
  - Off label use [Unknown]

NARRATIVE: CASE EVENT DATE: 20190101
